FAERS Safety Report 5957933-4 (Version None)
Quarter: 2008Q4

REPORT INFORMATION
  Report Type: 
  Country: None (occurrence: None)
  Receive Date: 20081119
  Receipt Date: 20081110
  Transmission Date: 20090506
  Serious: Yes (Hospitalization)
  Sender: FDA-Public Use
  Company Number: SE-TYCO HEALTHCARE/MALLINCKRODT-T200801933

PATIENT

DRUGS (2)
  1. ANAFRANIL CAP [Suspect]
     Dosage: 75 MG, 80 DEPOT TABS
     Route: 048
  2. SOBRIL [Suspect]
     Dosage: 10 MG, 12 TABLETS
     Route: 048

REACTIONS (2)
  - BEZOAR [None]
  - OVERDOSE [None]
